FAERS Safety Report 8494115-9 (Version None)
Quarter: 2012Q2

REPORT INFORMATION
  Report Type: 
  Country: None (occurrence: None)
  Receive Date: 20120628
  Receipt Date: 20120619
  Transmission Date: 20120825
  Serious: Yes (Hospitalization)
  Sender: FDA-Public Use
  Company Number: 2012SP030917

PATIENT
  Age: 68 Year
  Sex: Male

DRUGS (2)
  1. TEMODAR [Suspect]
     Indication: BRAIN NEOPLASM
     Dosage: 140 MG;QD;PO
     Route: 048
     Dates: start: 20120212, end: 20120301
  2. KYTRIL [Concomitant]

REACTIONS (1)
  - CONSTIPATION [None]
